FAERS Safety Report 8586723-1 (Version None)
Quarter: 2012Q3

REPORT INFORMATION
  Report Type: 
  Country: None (occurrence: None)
  Receive Date: 20120810
  Receipt Date: 20120731
  Transmission Date: 20120928
  Serious: Yes (Other)
  Sender: FDA-Public Use
  Company Number: AU-CELGENEUS-008-C5013-12073151

PATIENT
  Sex: Male
  Weight: 98.4 kg

DRUGS (1)
  1. LENALIDOMIDE [Suspect]
     Route: 048
     Dates: start: 20100208

REACTIONS (1)
  - SQUAMOUS CELL CARCINOMA OF SKIN [None]
